FAERS Safety Report 11036805 (Version 1)
Quarter: 2015Q2

REPORT INFORMATION
  Report Type: Spontaneous
  Country: US (occurrence: US)
  Receive Date: 20150416
  Receipt Date: 20150416
  Transmission Date: 20150821
  Serious: No
  Sender: FDA-Public Use
  Company Number: US-009507513-1504USA016616

PATIENT
  Age: 77 Year
  Sex: Female

DRUGS (2)
  1. FOSAMAX [Suspect]
     Active Substance: ALENDRONATE SODIUM
     Indication: OSTEOPOROSIS
     Dosage: ONE TABLET FROM EACH BOTTLE EVERY WEEK, 3 TABLETS WEEKLY
     Route: 048
     Dates: start: 20150314
  2. GLIMEPIRIDE. [Concomitant]
     Active Substance: GLIMEPIRIDE

REACTIONS (3)
  - Tremor [Unknown]
  - Overdose [Unknown]
  - Nystagmus [Unknown]

NARRATIVE: CASE EVENT DATE: 2015
